FAERS Safety Report 6540089-7 (Version None)
Quarter: 2010Q1

REPORT INFORMATION
  Report Type: 
  Country: None (occurrence: None)
  Receive Date: 20100115
  Receipt Date: 20100108
  Transmission Date: 20100710
  Serious: Yes (Other)
  Sender: FDA-Public Use
  Company Number: GB-AMGEN-QUU385044

PATIENT

DRUGS (2)
  1. NEULASTA [Suspect]
     Indication: PRE-EXISTING DISEASE
     Route: 065
     Dates: start: 20091201
  2. LENOGRASTIM [Concomitant]

REACTIONS (1)
  - DRUG INEFFECTIVE [None]
